FAERS Safety Report 9516814 (Version 1)
Quarter: 2013Q1

REPORT INFORMATION
  Report Type: Spontaneous
  Country: US (occurrence: None)
  Receive Date: 20130305
  Receipt Date: 20130305
  Transmission Date: 20140127
  Serious: Yes (Other)
  Sender: FDA-Public Use
  Company Number: 163-21880-12120585

PATIENT
  Age: 56 Year
  Sex: Male

DRUGS (10)
  1. REVLIMID (LENALIDOMIDE) (CAPSULES) [Suspect]
     Indication: PLASMA CELL MYELOMA
     Route: 048
     Dates: start: 20121109
  2. K-DUR (POTASSIUM CHLORIDE) (TABLETS) [Concomitant]
  3. CLONAZEPAM (CLONAZEPAM) [Concomitant]
  4. DEXAMETHASONE (DEXAMETHASONE) [Concomitant]
  5. LORAZEPAM (LORAZEPAM) [Concomitant]
  6. HYDROCODONE/APOAP (VICODIN) [Concomitant]
  7. FLOVENT (FLUTICASONE PROPIONATE) [Concomitant]
  8. CYCLOBENZAPRINE (CYCLOBENZAPRINE) [Concomitant]
  9. PROAIR HFA (SALBUTAMOL SULFATE) (AEROSOL FOR INHALATION) [Concomitant]
  10. IBUPROFEN (IBUPROFEN) [Concomitant]

REACTIONS (1)
  - Neutropenia [None]
